FAERS Safety Report 5976028-7 (Version None)
Quarter: 2008Q4

REPORT INFORMATION
  Report Type: 
  Country: None (occurrence: None)
  Receive Date: 20081124
  Receipt Date: 20080527
  Transmission Date: 20090506
  Serious: Yes (Hospitalization, Other)
  Sender: FDA-Public Use
  Company Number: 48802

PATIENT
  Sex: Male
  Weight: 108.8633 kg

DRUGS (11)
  1. AMIODARONE HCL [Suspect]
     Indication: ATRIAL FIBRILLATION
     Dates: start: 20080125
  2. BYETTA [Concomitant]
  3. LEVEMIR [Concomitant]
  4. GLUCOPHAGE [Concomitant]
  5. TRICOR [Concomitant]
  6. ZETIA [Concomitant]
  7. ENALAPRIL MALEATE [Concomitant]
  8. METOPROLOL [Concomitant]
  9. WELCHOL [Concomitant]
  10. PLAVIX [Concomitant]
  11. COUMADIN [Concomitant]

REACTIONS (2)
  - VISION BLURRED [None]
  - VISUAL IMPAIRMENT [None]
